FAERS Safety Report 9157165 (Version 1)
Quarter: 2013Q1

REPORT INFORMATION
  Report Type: Spontaneous
  Country: PT (occurrence: None)
  Receive Date: 20130308
  Receipt Date: 20130308
  Transmission Date: 20140127
  Serious: Yes (Death, Hospitalization, Other)
  Sender: FDA-Public Use
  Company Number: 2013P1002839

PATIENT
  Age: 10 Day
  Sex: Female
  Weight: 1.35 kg

DRUGS (1)
  1. AMOXICILLIN [Suspect]
     Indication: OTITIS MEDIA ACUTE
     Route: 064

REACTIONS (10)
  - Foetal hypokinesia [None]
  - Tachycardia foetal [None]
  - Caesarean section [None]
  - Bradycardia [None]
  - Hypotonia [None]
  - Neonatal respiratory distress syndrome [None]
  - Coma [None]
  - Premature baby [None]
  - Cerebral ischaemia [None]
  - Cerebral infarction [None]
